FAERS Safety Report 7450009-9 (Version None)
Quarter: 2011Q2

REPORT INFORMATION
  Report Type: 
  Country: None (occurrence: None)
  Receive Date: 20110502
  Receipt Date: 20110420
  Transmission Date: 20111010
  Serious: Yes (Hospitalization)
  Sender: FDA-Public Use
  Company Number: FR-ELI_LILLY_AND_COMPANY-FR201103000112

PATIENT
  Age: 73 Year
  Sex: Female
  Weight: 52 kg

DRUGS (4)
  1. FORTEO [Suspect]
     Indication: OSTEOPOROSIS
     Dosage: 20 UG, DAILY (1/D)
     Route: 058
     Dates: start: 20101101
  2. TANAKAN [Concomitant]
     Dosage: UNK
  3. ATARAX [Concomitant]
     Dosage: 25 MG, QD
  4. LIPANTHYL [Concomitant]
     Dosage: UNK

REACTIONS (2)
  - WRIST FRACTURE [None]
  - FALL [None]
